FAERS Safety Report 6761710-4 (Version None)
Quarter: 2010Q2

REPORT INFORMATION
  Report Type: 
  Country: None (occurrence: None)
  Receive Date: 20100426
  Receipt Date: 20100419
  Transmission Date: 20101027
  Serious: Yes (Other)
  Sender: FDA-Public Use
  Company Number: None

PATIENT
  Age: 66 Year
  Sex: Male
  Weight: 57 kg

DRUGS (3)
  1. FLEBOGAMMA 5% (HUMAN NORMAL IMMUNOGLOBULIN) [Suspect]
     Indication: BLOOD IMMUNOGLOBULIN G DECREASED
     Dosage: 30 G MONTHLY; 20 G MONTHLY
     Route: 042
     Dates: start: 20080101, end: 20100201
  2. FLEBOGAMMA 5% (HUMAN NORMAL IMMUNOGLOBULIN) [Suspect]
     Indication: BLOOD IMMUNOGLOBULIN G DECREASED
     Dosage: 30 G MONTHLY; 20 G MONTHLY
     Route: 042
     Dates: start: 20080301, end: 20100301
  3. FLEBOGAMMA 5% (HUMAN NORMAL IMMUNOGLOBULIN) [Suspect]
     Indication: BLOOD IMMUNOGLOBULIN G DECREASED
     Dosage: 30 G MONTHLY; 20 G MONTHLY
     Route: 042
     Dates: start: 20100201

REACTIONS (2)
  - HEPATITIS C [None]
  - TRANSMISSION OF AN INFECTIOUS AGENT VIA A MEDICINAL PRODUCT [None]
